FAERS Safety Report 5825994-9 (Version None)
Quarter: 2008Q3

REPORT INFORMATION
  Report Type: 
  Country: None (occurrence: None)
  Receive Date: 20080729
  Receipt Date: 20080715
  Transmission Date: 20090109
  Serious: Yes (Other)
  Sender: FDA-Public Use
  Company Number: US-SANOFI-SYNTHELABO-A03200800211

PATIENT
  Sex: Male
  Weight: 95.24 kg

DRUGS (7)
  1. METOPROLOL TARTRATE [Concomitant]
     Indication: CORONARY ARTERY DISEASE
     Route: 048
     Dates: start: 20030101
  2. CITALOPRAM HYDROBROMIDE [Concomitant]
     Indication: DYSTHYMIC DISORDER
     Route: 048
     Dates: start: 20060701
  3. VYTORIN [Concomitant]
     Indication: HYPERLIPIDAEMIA
     Dosage: 10/40 MG DAILY
     Route: 065
     Dates: start: 20050601
  4. VYTORIN [Concomitant]
     Indication: CORONARY ARTERY DISEASE
     Dosage: 10/40 MG DAILY
     Route: 065
     Dates: start: 20050601
  5. COUMADIN [Suspect]
     Indication: KNEE OPERATION
     Dosage: UNK
     Route: 065
     Dates: start: 20070401, end: 20070101
  6. PLAVIX [Suspect]
     Indication: STENT PLACEMENT
     Route: 048
     Dates: start: 20070601, end: 20080101
  7. ASPIRIN [Suspect]
     Indication: CORONARY ARTERY DISEASE
     Route: 048
     Dates: start: 20030101

REACTIONS (3)
  - ANAEMIA HAEMOLYTIC AUTOIMMUNE [None]
  - ASTHENIA [None]
  - MYELODYSPLASTIC SYNDROME [None]
